FAERS Safety Report 8989323 (Version 1)
Quarter: 2012Q4

REPORT INFORMATION
  Report Type: 
  Country: US (occurrence: US)
  Receive Date: 20121227
  Receipt Date: 20121227
  Transmission Date: 20130627
  Serious: Yes (Death)
  Sender: FDA-Public Use
  Company Number: US-GILEAD-2012-0066938

PATIENT
  Sex: Female

DRUGS (4)
  1. LETAIRIS [Suspect]
     Indication: PULMONARY HYPERTENSION
     Dosage: 10 mg, QD
     Route: 048
     Dates: start: 20110802
  2. AZATHIOPRINE [Suspect]
     Dosage: 50 mg, QD
  3. OMEPRAZOLE [Suspect]
     Dosage: 20 mg, QD
  4. PREDNISONE [Suspect]
     Dosage: 15 mg, QD

REACTIONS (1)
  - Death [Fatal]
